FAERS Safety Report 7668727-6 (Version None)
Quarter: 2011Q3

REPORT INFORMATION
  Report Type: 
  Country: None (occurrence: None)
  Receive Date: 20110808
  Receipt Date: 20110725
  Transmission Date: 20111222
  Serious: Yes (Hospitalization)
  Sender: FDA-Public Use
  Company Number: US-CELGENEUS-163-21660-11072886

PATIENT
  Sex: Male
  Weight: 109.1 kg

DRUGS (22)
  1. MIRTAZAPINE [Concomitant]
     Route: 048
  2. RITALIN [Concomitant]
     Route: 048
  3. SEROQUEL [Concomitant]
     Route: 048
  4. HYDRATION [Concomitant]
     Route: 041
     Dates: start: 20110701
  5. MBL MOUTHWASH [Concomitant]
     Route: 065
  6. ONDANSETRON [Concomitant]
     Route: 048
  7. DIFLUCAN [Concomitant]
     Route: 065
  8. OXYCODONE HCL [Concomitant]
     Route: 048
  9. SIMVASTATIN [Concomitant]
     Route: 048
  10. REGLAN [Concomitant]
     Route: 065
     Dates: start: 20110701
  11. ATENOLOL [Concomitant]
     Route: 065
  12. TEGRETOL [Concomitant]
     Route: 048
  13. ZOFRAN [Concomitant]
     Route: 065
     Dates: start: 20110701
  14. ABRAXANE [Suspect]
     Dosage: 50 MILLIGRAM/SQ. METER
     Route: 041
     Dates: start: 20110620, end: 20110718
  15. LORAZEPAM [Concomitant]
     Route: 065
  16. COLACE [Concomitant]
     Route: 065
  17. SENNA [Concomitant]
     Route: 048
  18. SERZONE [Concomitant]
     Route: 048
  19. CARBOPLATIN [Suspect]
     Dosage: 1.5 AUC
     Route: 041
     Dates: start: 20110620, end: 20110718
  20. DILAUDID [Concomitant]
     Route: 065
  21. METHADONE HYDROCHLORIDE [Concomitant]
     Route: 048
  22. TERAZOSIN HCL [Concomitant]
     Route: 048

REACTIONS (3)
  - DIZZINESS [None]
  - MALAISE [None]
  - NAUSEA [None]
